FAERS Safety Report 12404916 (Version 1)
Quarter: 2016Q2

REPORT INFORMATION
  Report Type: Spontaneous
  Country: US (occurrence: US)
  Receive Date: 20160525
  Receipt Date: 20160525
  Transmission Date: 20160815
  Serious: No
  Sender: FDA-Public Use
  Company Number: US-ELI_LILLY_AND_COMPANY-US201605006990

PATIENT
  Sex: Female

DRUGS (3)
  1. HUMALOG [Suspect]
     Active Substance: INSULIN LISPRO
     Indication: TYPE 2 DIABETES MELLITUS
     Dosage: 6 U, WITH EACH MEAL
     Route: 065
     Dates: start: 201512
  2. LANTUS [Concomitant]
     Active Substance: INSULIN GLARGINE
  3. HUMALOG [Suspect]
     Active Substance: INSULIN LISPRO
     Dosage: 6 U, WITH EACH MEAL
     Route: 065

REACTIONS (4)
  - Pain [Not Recovered/Not Resolved]
  - Accident [Not Recovered/Not Resolved]
  - Joint injury [Not Recovered/Not Resolved]
  - Blood glucose increased [Not Recovered/Not Resolved]

NARRATIVE: CASE EVENT DATE: 201602
